APPROVED DRUG PRODUCT: FENOFIBRATE (MICRONIZED)
Active Ingredient: FENOFIBRATE
Strength: 134MG
Dosage Form/Route: CAPSULE;ORAL
Application: A207805 | Product #002 | TE Code: AB
Applicant: REYOUNG CORPORATION
Approved: Nov 16, 2017 | RLD: No | RS: No | Type: RX